FAERS Safety Report 4474751-7 (Version None)
Quarter: 2004Q4

REPORT INFORMATION
  Report Type: 
  Country: None (occurrence: None)
  Receive Date: 20041012
  Receipt Date: 20041005
  Transmission Date: 20050328
  Serious: Yes (Hospitalization)
  Sender: FDA-Public Use
  Company Number: MK200410-0078-1

PATIENT
  Age: 51 Year
  Sex: Female

DRUGS (4)
  1. ANAFRANIL [Suspect]
     Dosage: 75MG
     Dates: start: 20030921, end: 20040921
  2. TRILEPTAL [Suspect]
  3. HIGROTONA [Suspect]
  4. LORMETAZEPAM [Concomitant]

REACTIONS (4)
  - BLOOD SODIUM DECREASED [None]
  - DRUG INTERACTION [None]
  - FALL [None]
  - HEAD INJURY [None]
